FAERS Safety Report 10695575 (Version 1)
Quarter: 2015Q1

REPORT INFORMATION
  Report Type: Spontaneous
  Country: US (occurrence: None)
  Receive Date: 20150105
  Receipt Date: 20150105
  Transmission Date: 20150721
  Serious: Yes (Hospitalization)
  Sender: FDA-Public Use
  Company Number: COM-002790

PATIENT
  Age: 67 Year
  Sex: Male

DRUGS (8)
  1. COZAAR [Concomitant]
     Active Substance: LOSARTAN POTASSIUM
  2. WATER PILL [Concomitant]
     Active Substance: UNSPECIFIED INGREDIENT
  3. MUCUS RELIEF SEVERE CONGESTION AND COUGH MAXIMUM STRENGTH [Suspect]
     Active Substance: DEXTROMETHORPHAN HYDROBROMIDE\GUAIFENESIN\PHENYLEPHRINE HYDROCHLORIDE
     Indication: COUGH
     Route: 048
     Dates: start: 20141219
  4. PLAVIX [Concomitant]
     Active Substance: CLOPIDOGREL BISULFATE
  5. FISH OIL [Concomitant]
     Active Substance: FISH OIL
  6. ASPIRIN. [Concomitant]
     Active Substance: ASPIRIN
  7. TOPROL XL [Concomitant]
     Active Substance: METOPROLOL SUCCINATE
  8. GLIMEPRIDE [Concomitant]
     Active Substance: GLIMEPIRIDE

REACTIONS (2)
  - Dizziness [None]
  - Vision blurred [None]

NARRATIVE: CASE EVENT DATE: 20141219
